FAERS Safety Report 5904031-1 (Version None)
Quarter: 2008Q3

REPORT INFORMATION
  Report Type: 
  Country: None (occurrence: None)
  Receive Date: 20080919
  Receipt Date: 20080723
  Transmission Date: 20090109
  Serious: No
  Sender: FDA-Public Use
  Company Number: US-WYE-H05248708

PATIENT
  Age: 64 Year
  Sex: Female

DRUGS (4)
  1. PRISTIQ [Suspect]
     Indication: DEPRESSION
     Dosage: TAKING PRISTIQ QOD ORAL; 50 MG 1X PER 1 DAY ORAL
     Route: 048
     Dates: start: 20080601, end: 20080601
  2. PRISTIQ [Suspect]
     Indication: DEPRESSION
     Dosage: TAKING PRISTIQ QOD ORAL; 50 MG 1X PER 1 DAY ORAL
     Route: 048
     Dates: start: 20080101
  3. LISINOPRIL [Concomitant]
  4. PREMARIN [Concomitant]

REACTIONS (1)
  - DRUG INEFFECTIVE [None]
